FAERS Safety Report 8348496-7 (Version None)
Quarter: 2012Q2

REPORT INFORMATION
  Report Type: 
  Country: None (occurrence: None)
  Receive Date: 20120509
  Receipt Date: 20120504
  Transmission Date: 20120825
  Serious: Yes (Death, Hospitalization)
  Sender: FDA-Public Use
  Company Number: GB-MERCK-1203GBR00086

PATIENT
  Age: 34 Year
  Sex: Female

DRUGS (12)
  1. AZITHROMYCIN [Concomitant]
     Indication: PROPHYLAXIS
     Route: 065
     Dates: start: 20090123
  2. SULFAMETHOXAZOLE AND TRIMETHOPRIM [Concomitant]
     Indication: PROPHYLAXIS
     Route: 065
     Dates: start: 20090123, end: 20090201
  3. PREDNISOLONE [Concomitant]
     Indication: CHEMOTHERAPY
     Route: 065
     Dates: start: 20090128, end: 20090203
  4. ATAZANAVIR [Concomitant]
     Indication: HIV INFECTION
     Route: 065
     Dates: start: 20090123, end: 20090201
  5. DOXORUBICIN [Concomitant]
     Indication: CHEMOTHERAPY
     Route: 065
     Dates: start: 20090128, end: 20090128
  6. VINCRISTINE SULFATE [Concomitant]
     Indication: CHEMOTHERAPY
     Route: 065
     Dates: start: 20090128, end: 20090128
  7. ALLOPURINOL [Concomitant]
     Indication: PROPHYLAXIS
     Route: 065
     Dates: start: 20090123
  8. FLUCONAZOLE [Concomitant]
     Indication: PROPHYLAXIS
     Route: 065
     Dates: start: 20090123, end: 20090201
  9. LAMIVUDINE [Concomitant]
     Indication: HIV INFECTION
     Route: 065
     Dates: start: 20090123, end: 20090201
  10. RALTEGRAVIR POTASSIUM [Suspect]
     Indication: HIV INFECTION
     Route: 048
     Dates: start: 20090123, end: 20090219
  11. RASBURICASE [Concomitant]
     Indication: PROPHYLAXIS
     Route: 065
     Dates: start: 20090128, end: 20090130
  12. CYCLOPHOSPHAMIDE [Concomitant]
     Indication: CHEMOTHERAPY
     Route: 065
     Dates: start: 20090128, end: 20090128

REACTIONS (7)
  - METABOLIC ACIDOSIS [None]
  - TRAUMATIC INTRACRANIAL HAEMORRHAGE [None]
  - ENTEROCOCCAL BACTERAEMIA [None]
  - PANCYTOPENIA [None]
  - PNEUMONIA [None]
  - PULMONARY OEDEMA [None]
  - RENAL FAILURE ACUTE [None]
